FAERS Safety Report 10590853 (Version 3)
Quarter: 2014Q4

REPORT INFORMATION
  Report Type: Report from Study
  Country: GB (occurrence: GB)
  Receive Date: 20141118
  Receipt Date: 20141119
  Transmission Date: 20150529
  Serious: Yes (Other)
  Sender: FDA-Public Use
  Company Number: GB-GLAXOSMITHKLINE-GB2014GSK005064

PATIENT
  Age: 64 Year
  Sex: Male

DRUGS (2)
  1. PAZOPANIB [Suspect]
     Active Substance: PAZOPANIB
     Indication: BLADDER NEOPLASM
     Dosage: 800 MG, QD
     Route: 048
     Dates: start: 20140821, end: 20141008
  2. DILTIAZEM [Concomitant]
     Active Substance: DILTIAZEM
     Indication: ANXIETY
     Dosage: 90 MG, TID
     Route: 048
     Dates: start: 20140731

REACTIONS (1)
  - Urine analysis abnormal [Recovered/Resolved]

NARRATIVE: CASE EVENT DATE: 20140923
